FAERS Safety Report 6477596-1 (Version None)
Quarter: 2009Q4

REPORT INFORMATION
  Report Type: 
  Country: None (occurrence: None)
  Receive Date: 20091203
  Receipt Date: 20091203
  Transmission Date: 20100525
  Serious: Yes (Other)
  Sender: FDA-Public Use
  Company Number: None

PATIENT
  Sex: Female
  Weight: 81.6475 kg

DRUGS (1)
  1. OXAPROZIN [Suspect]
     Indication: ARTHRALGIA
     Dosage: 600MG BID PO
     Route: 048
     Dates: start: 20091105, end: 20091110

REACTIONS (3)
  - DRUG INEFFECTIVE [None]
  - PAIN [None]
  - PRODUCT SUBSTITUTION ISSUE [None]
